FAERS Safety Report 7315010-4 (Version None)
Quarter: 2011Q1

REPORT INFORMATION
  Report Type: 
  Country: None (occurrence: None)
  Receive Date: 20110225
  Receipt Date: 20100412
  Transmission Date: 20110831
  Serious: No
  Sender: FDA-Public Use
  Company Number: US-MYLANLABS-2010S1003783

PATIENT
  Age: 16 Year
  Sex: Male
  Weight: 70.31 kg

DRUGS (3)
  1. CLARAVIS [Suspect]
  2. CLARAVIS [Suspect]
     Indication: ACNE
     Dates: start: 20091001
  3. AMNESTEEM [Suspect]
     Indication: ACNE
     Route: 048
     Dates: start: 20100122, end: 20100205

REACTIONS (3)
  - EPISTAXIS [None]
  - DRY SKIN [None]
  - ERECTILE DYSFUNCTION [None]
